FAERS Safety Report 6922427-6 (Version None)
Quarter: 2010Q3

REPORT INFORMATION
  Report Type: 
  Country: None (occurrence: None)
  Receive Date: 20100813
  Receipt Date: 20100728
  Transmission Date: 20110219
  Serious: Yes (Hospitalization)
  Sender: FDA-Public Use
  Company Number: US-BAYER-201014307NA

PATIENT
  Age: 33 Year
  Sex: Female
  Weight: 142 kg

DRUGS (8)
  1. YAZ [Suspect]
     Indication: CONTRACEPTION
     Dates: start: 20080130, end: 20080101
  2. HYDROXYZINE [Concomitant]
  3. VALTREX [Concomitant]
  4. FEXOFENADINE [Concomitant]
  5. FLONASE [Concomitant]
  6. ABILIFY [Concomitant]
  7. STRATTERA [Concomitant]
  8. LEXAPRO [Concomitant]

REACTIONS (5)
  - CHEST PAIN [None]
  - DYSPNOEA [None]
  - PULMONARY EMBOLISM [None]
  - SLEEP APNOEA SYNDROME [None]
  - SLEEP DISORDER [None]
